FAERS Safety Report 24611437 (Version 1)
Quarter: 2024Q4

REPORT INFORMATION
  Report Type: Spontaneous
  Country: US (occurrence: US)
  Receive Date: 20241113
  Receipt Date: 20241113
  Transmission Date: 20250114
  Serious: No
  Sender: CELLTRION
  Company Number: US-CELLTRION INC.-2023US023282

PATIENT

DRUGS (1)
  1. HERZUMA [Suspect]
     Active Substance: TRASTUZUMAB-PKRB
     Indication: Breast cancer female
     Dosage: UNK
     Dates: start: 20231121

REACTIONS (6)
  - Paranoia [Unknown]
  - Vision blurred [Unknown]
  - Lethargy [Unknown]
  - Nausea [Unknown]
  - Hypertension [Unknown]
  - Back pain [Unknown]
